FAERS Safety Report 7156097-1 (Version None)
Quarter: 2010Q4

REPORT INFORMATION
  Report Type: 
  Country: None (occurrence: None)
  Receive Date: 20101123
  Receipt Date: 20101013
  Transmission Date: 20110411
  Serious: Yes (Hospitalization)
  Sender: FDA-Public Use
  Company Number: 019767

PATIENT
  Sex: Male
  Weight: 83.4619 kg

DRUGS (3)
  1. CIMZIA [Suspect]
     Indication: CROHN'S DISEASE
     Dosage: SUBCUTANEOUS
     Route: 058
     Dates: start: 20090414, end: 20100503
  2. ENTOCORT EC [Concomitant]
  3. COLESTID [Concomitant]

REACTIONS (1)
  - CROHN'S DISEASE [None]
